FAERS Safety Report 15469952 (Version 1)
Quarter: 2018Q4

REPORT INFORMATION
  Report Type: Spontaneous
  Country: FR (occurrence: FR)
  Receive Date: 20181005
  Receipt Date: 20181005
  Transmission Date: 20190205
  Serious: Yes (Death)
  Sender: FDA-Public Use
  Company Number: FR-ELI_LILLY_AND_COMPANY-FR201810001239

PATIENT
  Age: 50 Year
  Sex: Male

DRUGS (3)
  1. CLOMIPRAMINE [Suspect]
     Active Substance: CLOMIPRAMINE
     Indication: INTENTIONAL OVERDOSE
     Dosage: UNK UNK, UNKNOWN
     Route: 048
     Dates: start: 20171213, end: 20171213
  2. PROPRANOLOL [Suspect]
     Active Substance: PROPRANOLOL HYDROCHLORIDE
     Indication: INTENTIONAL OVERDOSE
     Dosage: 75 DF, UNKNOWN
     Route: 048
     Dates: start: 20171213, end: 20171213
  3. OLANZAPINE. [Suspect]
     Active Substance: OLANZAPINE
     Indication: INTENTIONAL OVERDOSE
     Dosage: 14 DF, UNKNOWN
     Route: 048
     Dates: start: 20171213, end: 20171213

REACTIONS (4)
  - Cardio-respiratory arrest [Fatal]
  - Intentional overdose [Fatal]
  - Bradycardia [Fatal]
  - Depressed level of consciousness [Fatal]

NARRATIVE: CASE EVENT DATE: 20171213
